FAERS Safety Report 11274565 (Version 1)
Quarter: 2015Q3

REPORT INFORMATION
  Report Type: Spontaneous
  Country: US (occurrence: US)
  Receive Date: 20150715
  Receipt Date: 20150715
  Transmission Date: 20151125
  Serious: Yes (Death, Other)
  Sender: FDA-Public Use
  Company Number: US-GLAXOSMITHKLINE-US2015GSK101839

PATIENT
  Age: 68 Year
  Sex: Male

DRUGS (3)
  1. MEKINIST [Suspect]
     Active Substance: TRAMETINIB DIMETHYL SULFOXIDE
     Indication: MALIGNANT MELANOMA
     Dosage: 2 MG, UNK
  2. INTERFERON ALFA-N1. [Suspect]
     Active Substance: INTERFERON ALFA-N1
     Indication: PRODUCT USED FOR UNKNOWN INDICATION
  3. TAFINLAR [Suspect]
     Active Substance: DABRAFENIB MESYLATE
     Indication: MALIGNANT MELANOMA
     Dosage: 75 MG, UNK

REACTIONS (4)
  - Metastatic malignant melanoma [Fatal]
  - Metastases to central nervous system [Unknown]
  - Surgery [Unknown]
  - Metastases to lung [Unknown]

NARRATIVE: CASE EVENT DATE: 201402
